FAERS Safety Report 21254558 (Version 1)
Quarter: 2022Q3

REPORT INFORMATION
  Report Type: Report from Study
  Country: BE (occurrence: BE)
  Receive Date: 20220825
  Receipt Date: 20220825
  Transmission Date: 20221026
  Serious: Yes (Hospitalization)
  Sender: FDA-Public Use
  Company Number: BE-ABBVIE-22K-013-4515403-00

PATIENT
  Sex: Male
  Weight: 120 kg

DRUGS (8)
  1. CARBIDOPA\LEVODOPA [Suspect]
     Active Substance: CARBIDOPA\LEVODOPA
     Indication: Parkinson^s disease
     Route: 050
     Dates: start: 20140512
  2. CARBIDOPA\LEVODOPA [Suspect]
     Active Substance: CARBIDOPA\LEVODOPA
     Dosage: ED 1.5 ML, CND 1.6 ML/H, DURING 16 HRS
     Route: 050
     Dates: start: 20210630, end: 20211007
  3. CARBIDOPA\LEVODOPA [Suspect]
     Active Substance: CARBIDOPA\LEVODOPA
     Dosage: MD 5.8 ML, CD 2.8 ML/H, ED 2.0 ML, CND 1.6 ML/H, DURING 16 HRS
     Route: 050
     Dates: start: 20211007, end: 20211014
  4. CARBIDOPA\LEVODOPA [Suspect]
     Active Substance: CARBIDOPA\LEVODOPA
     Dosage: MD 5.8 ML, CD 2.8 ML/H, ED 2.0 ML, CND 1.6 ML/H, DURING 24 HRS
     Route: 050
     Dates: start: 20211014, end: 20211109
  5. CARBIDOPA\LEVODOPA [Suspect]
     Active Substance: CARBIDOPA\LEVODOPA
     Dosage: MD 5.8 ML, CD 2.8 ML/H, ED 2.0 ML, CND 1.6 ML/H, DURING 24 HRS
     Route: 050
     Dates: start: 20211109
  6. PRAMIPEXOLE [Concomitant]
     Active Substance: PRAMIPEXOLE
     Indication: Product used for unknown indication
  7. BENSERAZIDE\LEVODOPA [Concomitant]
     Active Substance: BENSERAZIDE\LEVODOPA
     Indication: Product used for unknown indication
     Dosage: AT NIGHT
  8. STALEVO [Concomitant]
     Active Substance: CARBIDOPA\ENTACAPONE\LEVODOPA
     Indication: Product used for unknown indication

REACTIONS (1)
  - Malaise [Unknown]
